FAERS Safety Report 5137946-5 (Version None)
Quarter: 2006Q4

REPORT INFORMATION
  Report Type: 
  Country: None (occurrence: None)
  Receive Date: 20061030
  Receipt Date: 20060321
  Transmission Date: 20070319
  Serious: No
  Sender: FDA-Public Use
  Company Number: US-GLAXOSMITHKLINE-A0598410A

PATIENT
  Age: 59 Year
  Sex: Female

DRUGS (8)
  1. ADVAIR HFA [Suspect]
     Indication: ASTHMA
     Dosage: 1BLS TWICE PER DAY
     Route: 055
     Dates: start: 20040101
  2. ALBUTEROL [Suspect]
     Indication: ASTHMA
     Route: 055
     Dates: start: 20040101
  3. COZAAR [Concomitant]
  4. MECLIZINE [Concomitant]
  5. DILTIAZEM HCL [Concomitant]
  6. PREMARIN [Concomitant]
  7. INDAPAMIDE [Concomitant]
  8. ALPRAZOLAM [Concomitant]

REACTIONS (8)
  - ABDOMINAL PAIN [None]
  - ABNORMAL SLEEP-RELATED EVENT [None]
  - DYSPNOEA [None]
  - PHARYNGOLARYNGEAL PAIN [None]
  - SINUS CONGESTION [None]
  - SNEEZING [None]
  - SUFFOCATION FEELING [None]
  - TREMOR [None]
